FAERS Safety Report 15965035 (Version 2)
Quarter: 2024Q4

REPORT INFORMATION
  Report Type: Spontaneous
  Country: US (occurrence: US)
  Receive Date: 20190215
  Receipt Date: 20241203
  Transmission Date: 20250115
  Serious: Yes (Death, Life-Threatening, Hospitalization, Other)
  Sender: HIKMA
  Company Number: US-HIKMA PHARMACEUTICALS USA INC.-US-H14001-19-00847

PATIENT

DRUGS (2)
  1. PREDNISONE [Suspect]
     Active Substance: PREDNISONE
     Indication: Chronic obstructive pulmonary disease
     Dosage: 10 MILLIGRAM, QD, LONG TERM, CHRONIC LOW-DOSE
     Route: 065
  2. PREDNISONE [Suspect]
     Active Substance: PREDNISONE
     Indication: Silicosis

REACTIONS (8)
  - Cardiac arrest [Fatal]
  - Pulseless electrical activity [Fatal]
  - Septic shock [Fatal]
  - Acute respiratory failure [Fatal]
  - Pneumonia [Fatal]
  - Cerebral nocardiosis [Fatal]
  - Burkholderia cepacia complex infection [Fatal]
  - Cutaneous nocardiosis [Fatal]
